FAERS Safety Report 6285647-2 (Version None)
Quarter: 2009Q3

REPORT INFORMATION
  Report Type: 
  Country: None (occurrence: None)
  Receive Date: 20090724
  Receipt Date: 20090716
  Transmission Date: 20100115
  Serious: No
  Sender: FDA-Public Use
  Company Number: 2009008624

PATIENT
  Age: 21 Year
  Sex: Female
  Weight: 43.0917 kg

DRUGS (2)
  1. FENTORA [Suspect]
     Indication: GASTROINTESTINAL PAIN
     Dosage: 800 MG, BU
     Route: 002
     Dates: start: 20090624
  2. PROTONIX [Concomitant]

REACTIONS (4)
  - ALANINE AMINOTRANSFERASE INCREASED [None]
  - ASPARTATE AMINOTRANSFERASE INCREASED [None]
  - BLOOD AMYLASE INCREASED [None]
  - DRUG PRESCRIBING ERROR [None]
